FAERS Safety Report 25629421 (Version 1)
Quarter: 2025Q3

REPORT INFORMATION
  Report Type: Spontaneous
  Country: CN (occurrence: CN)
  Receive Date: 20250731
  Receipt Date: 20250731
  Transmission Date: 20251020
  Serious: Yes (Other)
  Sender: JAZZ
  Company Number: CN-JAZZ PHARMACEUTICALS-2025-CN-018449

PATIENT
  Age: 62 Year
  Sex: Female

DRUGS (3)
  1. ZIIHERA [Suspect]
     Active Substance: ZANIDATAMAB-HRII
     Indication: Bile duct cancer
  2. TISLELIZUMAB [Suspect]
     Active Substance: TISLELIZUMAB
     Indication: Bile duct cancer
  3. LENVATINIB [Concomitant]
     Active Substance: LENVATINIB
     Indication: Bile duct cancer

REACTIONS (5)
  - Gastrointestinal haemorrhage [Unknown]
  - Cardiac failure [Unknown]
  - Acute kidney injury [Unknown]
  - Coma [Unknown]
  - Drug effect less than expected [Unknown]

NARRATIVE: CASE EVENT DATE: 20250601
